FAERS Safety Report 20620077 (Version 2)
Quarter: 2022Q1

REPORT INFORMATION
  Report Type: Spontaneous
  Country: US (occurrence: US)
  Receive Date: 20220322
  Receipt Date: 20220322
  Transmission Date: 20220424
  Serious: No
  Sender: FDA-Public Use
  Company Number: US-SOMERSET-2022-US-000070

PATIENT
  Sex: Female

DRUGS (9)
  1. PILOCARPINE HYDROCHLORIDE [Suspect]
     Active Substance: PILOCARPINE HYDROCHLORIDE
     Dates: start: 20220112, end: 20220113
  2. TIMOLOL [Concomitant]
     Active Substance: TIMOLOL
     Dosage: 1 GGT OU BID
  3. BRIMONIDINE [Concomitant]
     Active Substance: BRIMONIDINE TARTRATE
     Dosage: 1 GGT TID L EYE
  4. Dorlolamide [Concomitant]
     Dosage: 1 GGT OU QD
  5. Rhopressa Eye Drops [Concomitant]
  6. Dry Eye Moisturizer [Concomitant]
  7. ACYCLOVIR [Concomitant]
     Active Substance: ACYCLOVIR
     Route: 048
  8. Leutin [Concomitant]
     Route: 048
  9. VITAMINS [Concomitant]
     Active Substance: VITAMINS
     Route: 048

REACTIONS (2)
  - Eye pain [Recovered/Resolved]
  - Eye pruritus [Recovered/Resolved]
